FAERS Safety Report 18753734 (Version 2)
Quarter: 2021Q1

REPORT INFORMATION
  Report Type: Report from Study
  Country: None (occurrence: CA)
  Receive Date: 20210118
  Receipt Date: 20210302
  Transmission Date: 20210419
  Serious: Yes (Hospitalization)
  Sender: FDA-Public Use
  Company Number: CA-ABBVIE-21K-028-3733723-00

PATIENT
  Sex: Female
  Weight: 131.66 kg

DRUGS (1)
  1. HUMIRA [Suspect]
     Active Substance: ADALIMUMAB
     Indication: HIDRADENITIS
     Route: 058
     Dates: start: 20160819, end: 202012

REACTIONS (4)
  - Hidradenitis [Not Recovered/Not Resolved]
  - Illness [Not Recovered/Not Resolved]
  - Pneumonia [Unknown]
  - Streptococcal infection [Unknown]
